FAERS Safety Report 11637094 (Version 1)
Quarter: 2015Q4

REPORT INFORMATION
  Report Type: Spontaneous
  Country: US (occurrence: None)
  Receive Date: 20151015
  Receipt Date: 20151015
  Transmission Date: 20160304
  Serious: Yes (Other)
  Sender: FDA-Public Use
  Company Number: None

PATIENT
  Age: 21 Year
  Sex: Male
  Weight: 81.65 kg

DRUGS (2)
  1. ZYRTEC [Concomitant]
     Active Substance: CETIRIZINE HYDROCHLORIDE
  2. CEFDINIR 300 MG CAPSULES [Suspect]
     Active Substance: CEFDINIR
     Indication: SINUSITIS
     Dosage: 300 MG TWICE DAILY TAKEN BY MOUTH
     Route: 048
     Dates: start: 20150928, end: 20151012

REACTIONS (7)
  - Dyspnoea [None]
  - Chills [None]
  - Tremor [None]
  - Feeling abnormal [None]
  - Anxiety [None]
  - Paraesthesia [None]
  - Cardiac disorder [None]

NARRATIVE: CASE EVENT DATE: 20151004
